FAERS Safety Report 10096173 (Version 3)
Quarter: 2014Q2

REPORT INFORMATION
  Report Type: Spontaneous
  Country: US (occurrence: US)
  Receive Date: 20140422
  Receipt Date: 20140626
  Transmission Date: 20141212
  Serious: No
  Sender: FDA-Public Use
  Company Number: US-PFIZER INC-2014110958

PATIENT
  Age: 48 Year
  Sex: Male
  Weight: 89.8 kg

DRUGS (2)
  1. CHANTIX [Suspect]
     Indication: SMOKING CESSATION THERAPY
     Dosage: 0.5 MG, DAILY
     Dates: start: 20140410, end: 201404
  2. CHANTIX [Suspect]
     Dosage: 1 MG, 2X/DAY
     Dates: start: 201404, end: 20140418

REACTIONS (3)
  - Speech disorder [Unknown]
  - Lethargy [Unknown]
  - Drug intolerance [Unknown]
